FAERS Safety Report 18364337 (Version 4)
Quarter: 2020Q4

REPORT INFORMATION
  Report Type: Report from Study
  Country: US (occurrence: US)
  Receive Date: 20201009
  Receipt Date: 20201121
  Transmission Date: 20210114
  Serious: Yes (Other)
  Sender: FDA-Public Use
  Company Number: NVSC2020US268653

PATIENT
  Sex: Female

DRUGS (1)
  1. KESIMPTA [Suspect]
     Active Substance: OFATUMUMAB
     Indication: PRODUCT USED FOR UNKNOWN INDICATION
     Dosage: UNK
     Route: 065

REACTIONS (14)
  - Pruritus [Unknown]
  - Blood pressure increased [Unknown]
  - Hallucination [Unknown]
  - Poor quality sleep [Unknown]
  - Pain [Unknown]
  - Post-traumatic stress disorder [Unknown]
  - Fatigue [Unknown]
  - Blood glucose increased [Unknown]
  - Inappropriate schedule of product administration [Unknown]
  - Vomiting [Unknown]
  - Bipolar disorder [Unknown]
  - Insomnia [Unknown]
  - Oropharyngeal pain [Unknown]
  - Crying [Unknown]
